FAERS Safety Report 5404680-3 (Version None)
Quarter: 2007Q3

REPORT INFORMATION
  Report Type: 
  Country: None (occurrence: None)
  Receive Date: 20070731
  Receipt Date: 20070717
  Transmission Date: 20080115
  Serious: Yes (Other)
  Sender: FDA-Public Use
  Company Number: 2006S1000132

PATIENT
  Age: 21 Year
  Sex: Male
  Weight: 89.5854 kg

DRUGS (2)
  1. ACITRETIN [Suspect]
     Indication: PSORIASIS
     Dosage: 20 MG;BID;PO
     Route: 048
     Dates: start: 20060207, end: 20060504
  2. DOVONEX [Concomitant]

REACTIONS (4)
  - EYE HAEMORRHAGE [None]
  - NAIL BED INFECTION [None]
  - OEDEMA PERIPHERAL [None]
  - SKIN DISCOLOURATION [None]
